FAERS Safety Report 5257788-X (Version None)
Quarter: 2007Q1

REPORT INFORMATION
  Report Type: 
  Country: None (occurrence: None)
  Receive Date: 20070307
  Receipt Date: 20070223
  Transmission Date: 20070707
  Serious: Yes (Other)
  Sender: FDA-Public Use
  Company Number: 2006GB01331

PATIENT
  Age: 38 Year
  Sex: Male

DRUGS (10)
  1. ATENOLOL [Suspect]
     Indication: HYPERTENSION
     Route: 065
  2. ASPIRIN [Suspect]
  3. ATORVASTATIN [Suspect]
     Indication: HYPERLIPIDAEMIA
  4. CELLCEPT [Suspect]
     Indication: RENAL TRANSPLANT
     Route: 048
     Dates: start: 20020615, end: 20060315
  5. NEORAL [Suspect]
     Indication: RENAL TRANSPLANT
     Dates: start: 20000101
  6. DOXAZOSIN MESYLATE [Suspect]
  7. ISONIAZID [Suspect]
  8. LAMIVUDINE [Suspect]
     Indication: HEPATITIS B
  9. PERINDOPRIL ERBUMINE [Suspect]
     Indication: HYPERTENSION
  10. PYRIDOXINE HCL [Suspect]

REACTIONS (1)
  - SPERMATOZOA PROGRESSIVE MOTILITY DECREASED [None]
